FAERS Safety Report 6129649-5 (Version None)
Quarter: 2009Q1

REPORT INFORMATION
  Report Type: 
  Country: None (occurrence: None)
  Receive Date: 20090323
  Receipt Date: 20090323
  Transmission Date: 20090719
  Serious: Yes (Hospitalization)
  Sender: FDA-Public Use
  Company Number: None

PATIENT
  Age: 79 Year
  Sex: Male
  Weight: 109 kg

DRUGS (9)
  1. BACTRIM [Suspect]
     Indication: CELLULITIS
     Dosage: 800/160MG TWICE DAILY ORAL
     Route: 048
     Dates: start: 20080927, end: 20081031
  2. WARFARIN SODIUM [Concomitant]
  3. METOPROLOL [Concomitant]
  4. METFORMIN [Concomitant]
  5. INDOMETHACIN [Concomitant]
  6. GLIPIZIDE [Concomitant]
  7. FUROSEMIDE [Concomitant]
  8. DIGOXIN [Concomitant]
  9. ALLOPURINOL [Concomitant]

REACTIONS (9)
  - ASTHENIA [None]
  - BLOOD CREATINE INCREASED [None]
  - BLOOD POTASSIUM INCREASED [None]
  - BLOOD PRESSURE SYSTOLIC DECREASED [None]
  - BLOOD UREA INCREASED [None]
  - DIZZINESS [None]
  - HEART RATE DECREASED [None]
  - OEDEMA PERIPHERAL [None]
  - RENAL DISORDER [None]
